FAERS Safety Report 22985455 (Version 2)
Quarter: 2023Q4

REPORT INFORMATION
  Report Type: Spontaneous
  Country: US (occurrence: US)
  Receive Date: 20230926
  Receipt Date: 20231012
  Transmission Date: 20240110
  Serious: Yes (Other)
  Sender: FDA-Public Use
  Company Number: US-MYLANLABS-2023M1101091

PATIENT
  Age: 22 Year
  Sex: Female

DRUGS (9)
  1. CETIRIZINE [Suspect]
     Active Substance: CETIRIZINE HYDROCHLORIDE
     Indication: Seasonal allergy
     Dosage: UNK, QD
     Route: 065
  2. GLYCOPYRRONIUM TOSYLATE [Suspect]
     Active Substance: GLYCOPYRRONIUM TOSYLATE
     Indication: Hyperhidrosis
     Dosage: UNK, QD (CLOTHS APPLIED BILATERALLY TO THE AXILLAE DAILY
     Route: 061
  3. BUPROPION [Concomitant]
     Active Substance: BUPROPION
     Indication: Depression
     Dosage: 300 MILLIGRAM, QD
     Route: 065
  4. MONTELUKAST [Concomitant]
     Active Substance: MONTELUKAST SODIUM
     Indication: Rhinitis allergic
     Dosage: 10 MILLIGRAM, HS
     Route: 065
  5. SPIRONOLACTONE [Concomitant]
     Active Substance: SPIRONOLACTONE
     Indication: Acne
     Dosage: 50 MILLIGRAM, QD
     Route: 065
  6. TRIFAROTENE [Concomitant]
     Active Substance: TRIFAROTENE
     Indication: Acne
     Dosage: UNK, 2 TO 3 TIMES WEEKLY
     Route: 061
  7. PHENAZOPYRIDINE [Concomitant]
     Active Substance: PHENAZOPYRIDINE
     Indication: Urinary tract infection
     Dosage: UNK
     Route: 065
  8. SUMATRIPTAN [Concomitant]
     Active Substance: SUMATRIPTAN
     Indication: Migraine
     Dosage: 50 MILLIGRAM
     Route: 065
  9. ALBUTEROL [Concomitant]
     Active Substance: ALBUTEROL
     Indication: Asthma
     Dosage: UNK, RESCUE INHALER
     Route: 065

REACTIONS (2)
  - Urinary retention [Unknown]
  - Mydriasis [Unknown]
